FAERS Safety Report 4553287-9 (Version None)
Quarter: 2005Q1

REPORT INFORMATION
  Report Type: 
  Country: None (occurrence: None)
  Receive Date: 20050113
  Receipt Date: 20050104
  Transmission Date: 20050727
  Serious: Yes (Hospitalization, Other)
  Sender: FDA-Public Use
  Company Number: HQWYE393305JAN05

PATIENT
  Age: 37 Year
  Sex: Male

DRUGS (8)
  1. RAPAMUNE [Suspect]
     Indication: PROPHYLAXIS AGAINST TRANSPLANT REJECTION
     Dosage: 3.5 MG 1X PER 1 DAY
     Route: 048
     Dates: start: 20040928, end: 20041201
  2. RAPAMUNE [Suspect]
     Indication: PROPHYLAXIS AGAINST TRANSPLANT REJECTION
     Dosage: 3.5 MG 1X PER 1 DAY
     Route: 048
     Dates: start: 20041201
  3. CYCLOSPORINE [Concomitant]
  4. PREDNISONE [Concomitant]
  5. ANTITHYMOCYTE IMMUNOGLOBULIN (ANTITHYMOCYTE IMMUNOGLOBULIN) [Concomitant]
  6. PROPRANOLOL [Concomitant]
  7. NIFEDIPINE [Concomitant]
  8. SULFAMETHOXAZOLE + TRIMETHOPRIM [Concomitant]

REACTIONS (9)
  - BACTERIAL INFECTION [None]
  - DIABETIC KETOACIDOSIS [None]
  - DRUG INTERACTION POTENTIATION [None]
  - DYSLIPIDAEMIA [None]
  - HEPATIC FUNCTION ABNORMAL [None]
  - IMMUNOSUPPRESSANT DRUG LEVEL INCREASED [None]
  - METABOLIC DISORDER [None]
  - RENAL IMPAIRMENT [None]
  - VESTIBULITIS [None]
